FAERS Safety Report 22038743 (Version 1)
Quarter: 2023Q1

REPORT INFORMATION
  Report Type: Report from Study
  Country: CO (occurrence: CO)
  Receive Date: 20230227
  Receipt Date: 20230227
  Transmission Date: 20230418
  Serious: Yes (Hospitalization, Other)
  Sender: FDA-Public Use
  Company Number: CO-UCBSA-2023009332

PATIENT
  Age: 65 Year
  Sex: Female

DRUGS (1)
  1. ROTIGOTINE [Suspect]
     Active Substance: ROTIGOTINE
     Indication: Parkinson^s disease
     Dosage: 16 MILLIGRAM, 24 HOURS
     Route: 062
     Dates: start: 20200612

REACTIONS (2)
  - Hospitalisation [Recovering/Resolving]
  - Renal neoplasm [Recovering/Resolving]

NARRATIVE: CASE EVENT DATE: 20221215
